FAERS Safety Report 8765948 (Version 5)
Quarter: 2015Q1

REPORT INFORMATION
  Report Type: Spontaneous
  Country: US (occurrence: US)
  Receive Date: 20120904
  Receipt Date: 20150331
  Transmission Date: 20150721
  Serious: Yes (Other)
  Sender: FDA-Public Use
  Company Number: US-009507513-1208USA012613

PATIENT
  Sex: Male
  Weight: 74.83 kg

DRUGS (2)
  1. PROPECIA [Suspect]
     Active Substance: FINASTERIDE
     Indication: ANDROGENETIC ALOPECIA
     Dosage: 1 MG, QD
     Route: 048
     Dates: start: 20050527, end: 2012
  2. FINASTERIDE. [Suspect]
     Active Substance: FINASTERIDE
     Indication: ANDROGENETIC ALOPECIA
     Dosage: 5 MG, QD
     Route: 048
     Dates: start: 2005

REACTIONS (19)
  - Cognitive disorder [Not Recovered/Not Resolved]
  - Back pain [Unknown]
  - Sunburn [Unknown]
  - Sexual dysfunction [Not Recovered/Not Resolved]
  - Depression [Not Recovered/Not Resolved]
  - Suicidal ideation [Unknown]
  - Memory impairment [Not Recovered/Not Resolved]
  - Drug ineffective [Unknown]
  - Anxiety [Not Recovered/Not Resolved]
  - Sinus arrhythmia [Unknown]
  - Hormone level abnormal [Unknown]
  - Self-injurious ideation [Unknown]
  - Headache [Unknown]
  - Depression [Unknown]
  - Erectile dysfunction [Unknown]
  - Drug administration error [Unknown]
  - Stress [Unknown]
  - Loss of libido [Unknown]
  - Condition aggravated [Unknown]

NARRATIVE: CASE EVENT DATE: 2005
